FAERS Safety Report 8027461-3 (Version None)
Quarter: 2012Q1

REPORT INFORMATION
  Report Type: 
  Country: None (occurrence: None)
  Receive Date: 20120106
  Receipt Date: 20111227
  Transmission Date: 20120608
  Serious: Yes (Death)
  Sender: FDA-Public Use
  Company Number: US-JNJFOC-20111212496

PATIENT
  Age: 44 Year
  Sex: Male

DRUGS (7)
  1. DIPHENHYDRAMINE HCL [Suspect]
     Indication: SUICIDE ATTEMPT
     Route: 065
  2. ETHANOL [Suspect]
     Indication: SUICIDE ATTEMPT
     Route: 065
  3. ACETAMINOPHEN [Suspect]
     Route: 065
  4. ACETAMINOPHEN [Suspect]
     Indication: SUICIDE ATTEMPT
     Route: 065
  5. METHAMPHETAMINE [Suspect]
     Indication: SUICIDE ATTEMPT
     Route: 065
  6. DIPHENHYDRAMINE HCL [Suspect]
     Route: 065
  7. SALICYLATES NOS [Suspect]
     Indication: SUICIDE ATTEMPT
     Route: 065

REACTIONS (1)
  - TOXICITY TO VARIOUS AGENTS [None]
